FAERS Safety Report 13759800 (Version 1)
Quarter: 2017Q3

REPORT INFORMATION
  Report Type: Spontaneous
  Country: US (occurrence: US)
  Receive Date: 20170717
  Receipt Date: 20170717
  Transmission Date: 20171127
  Serious: No
  Sender: FDA-Public Use
  Company Number: US-SHIRE-US201713622

PATIENT
  Sex: Female
  Weight: 77.98 kg

DRUGS (4)
  1. VYVANSE [Suspect]
     Active Substance: LISDEXAMFETAMINE DIMESYLATE
     Indication: OFF LABEL USE
  2. CYMBALTA [Concomitant]
     Active Substance: DULOXETINE HYDROCHLORIDE
     Indication: ANXIETY
     Dosage: 60 MG, UNKNOWN
     Route: 048
     Dates: start: 2007
  3. VYVANSE [Suspect]
     Active Substance: LISDEXAMFETAMINE DIMESYLATE
     Indication: NARCOLEPSY
     Dosage: 40 MG, 1X/DAY:QD
     Route: 048
     Dates: start: 2017, end: 2017
  4. VYVANSE [Suspect]
     Active Substance: LISDEXAMFETAMINE DIMESYLATE
     Indication: BINGE EATING
     Dosage: 50 MG, 1X/DAY:QD
     Route: 048
     Dates: start: 2007, end: 2017

REACTIONS (2)
  - Tic [Recovered/Resolved]
  - Off label use [Recovered/Resolved]

NARRATIVE: CASE EVENT DATE: 2007
